FAERS Safety Report 7613002-9 (Version None)
Quarter: 2011Q3

REPORT INFORMATION
  Report Type: 
  Country: None (occurrence: None)
  Receive Date: 20110713
  Receipt Date: 20110613
  Transmission Date: 20111222
  Serious: No
  Sender: FDA-Public Use
  Company Number: US-005549

PATIENT
  Sex: Male
  Weight: 92.5338 kg

DRUGS (4)
  1. DEGARELIX (240 MG, 80 MG) [Suspect]
     Indication: PROSTATE CANCER
     Dosage: (240 MG 1X SUBCUTANEOUS), (80 MG 1X/MONTH SUBCUTANEOUS)
     Route: 058
     Dates: start: 20090325, end: 20090325
  2. DEGARELIX (240 MG, 80 MG) [Suspect]
     Indication: PROSTATE CANCER
     Dosage: (240 MG 1X SUBCUTANEOUS), (80 MG 1X/MONTH SUBCUTANEOUS)
     Route: 058
     Dates: start: 20090409
  3. VIAGRA [Concomitant]
  4. FLURAZEPAM [Concomitant]

REACTIONS (4)
  - HEADACHE [None]
  - VOMITING [None]
  - NAUSEA [None]
  - CHILLS [None]
